FAERS Safety Report 6314579-6 (Version None)
Quarter: 2009Q3

REPORT INFORMATION
  Report Type: 
  Country: None (occurrence: None)
  Receive Date: 20090817
  Receipt Date: 20090803
  Transmission Date: 20100115
  Serious: Yes (Hospitalization)
  Sender: FDA-Public Use
  Company Number: 005911

PATIENT
  Age: 84 Year
  Sex: Male

DRUGS (11)
  1. PLETAL [Suspect]
     Indication: PAIN IN EXTREMITY
     Dosage: 50 MG, BID ORAL
     Route: 048
     Dates: start: 20090204, end: 20090225
  2. SINGULAIR (MONTELUKAST SODIUM) TABLET [Concomitant]
  3. SPIRIVA (TIOTROPIUM BROMIDE) CAPSULE [Concomitant]
  4. ENALAPRIL MALEATE [Concomitant]
  5. ALDACTONE [Concomitant]
  6. ZYLORIC (FUROSEMIDE) TABLET [Concomitant]
  7. LASIX [Concomitant]
  8. BAYASPIRIN (ACETYLSALICYLIC ACID) TABLET [Concomitant]
  9. MUCODYNE (CARBOCISTEINE) TABLET [Concomitant]
  10. MEXETIL (MEXILETIN HYDROCHLORIDE) CAPSULE [Concomitant]
  11. WARFARIN (WARFARIN POTASSIUM) TABLET [Concomitant]

REACTIONS (8)
  - DECREASED APPETITE [None]
  - DEHYDRATION [None]
  - EATING DISORDER [None]
  - HAEMOGLOBIN DECREASED [None]
  - PLATELET COUNT DECREASED [None]
  - PYREXIA [None]
  - RENAL FAILURE ACUTE [None]
  - WHITE BLOOD CELL COUNT DECREASED [None]
